FAERS Safety Report 7234945-4 (Version None)
Quarter: 2010Q4

REPORT INFORMATION
  Report Type: 
  Country: None (occurrence: None)
  Receive Date: 20101130
  Receipt Date: 20090828
  Transmission Date: 20110411
  Serious: Yes (Hospitalization)
  Sender: FDA-Public Use
  Company Number: 2009-195783-NL

PATIENT
  Age: 36 Year
  Sex: Female
  Weight: 108.8633 kg

DRUGS (2)
  1. NUVARING [Suspect]
     Indication: MENSTRUATION IRREGULAR
     Dosage: 1 DF
     Dates: start: 20040701, end: 20080525
  2. WARFARIN [Concomitant]

REACTIONS (1)
  - PULMONARY EMBOLISM [None]
